FAERS Safety Report 11095704 (Version 2)
Quarter: 2015Q2

REPORT INFORMATION
  Report Type: Spontaneous
  Country: KW (occurrence: KW)
  Receive Date: 20150507
  Receipt Date: 20150521
  Transmission Date: 20150821
  Serious: Yes (Life-Threatening, Other)
  Sender: FDA-Public Use
  Company Number: KW-009507513-1505KWT001403

PATIENT
  Age: 27 Year
  Sex: Female

DRUGS (3)
  1. FEXOFENADINE [Concomitant]
     Active Substance: FEXOFENADINE\FEXOFENADINE HYDROCHLORIDE
     Indication: ANTIALLERGIC THERAPY
     Dosage: 180 MG, QID
     Route: 048
     Dates: end: 20150502
  2. SINGULAIR [Suspect]
     Active Substance: MONTELUKAST SODIUM
     Indication: URTICARIA
     Dosage: 10 MG, TWICE DAILY
     Route: 048
     Dates: end: 20150502
  3. CORTISONE ACETATE. [Concomitant]
     Active Substance: CORTISONE ACETATE
     Indication: URTICARIA
     Dosage: UNK
     Route: 048
     Dates: end: 20150502

REACTIONS (8)
  - Palpitations [Recovering/Resolving]
  - Drug administration error [Unknown]
  - Overdose [Unknown]
  - Depression [Recovering/Resolving]
  - Headache [Recovering/Resolving]
  - Suicidal ideation [Recovering/Resolving]
  - Abdominal pain [Recovering/Resolving]
  - Emotional distress [Recovering/Resolving]
